FAERS Safety Report 5942062-6 (Version None)
Quarter: 2008Q4

REPORT INFORMATION
  Report Type: 
  Country: None (occurrence: None)
  Receive Date: 20081105
  Receipt Date: 20081103
  Transmission Date: 20090506
  Serious: Yes (Other)
  Sender: FDA-Public Use
  Company Number: A0754620A

PATIENT

DRUGS (1)
  1. LOVAZA [Suspect]
     Route: 048
     Dates: start: 20081001

REACTIONS (1)
  - ANGIOEDEMA [None]
